FAERS Safety Report 11368537 (Version 1)
Quarter: 2015Q3

REPORT INFORMATION
  Report Type: Spontaneous
  Country: US (occurrence: US)
  Receive Date: 20150812
  Receipt Date: 20150812
  Transmission Date: 20151125
  Serious: No
  Sender: FDA-Public Use
  Company Number: US-BRISTOL-MYERS SQUIBB COMPANY-BMS-2015-052197

PATIENT
  Sex: Female

DRUGS (1)
  1. ABILIFY [Suspect]
     Active Substance: ARIPIPRAZOLE
     Indication: POST-TRAUMATIC STRESS DISORDER
     Dosage: 1 MG, QD
     Route: 065
     Dates: start: 201506, end: 201507

REACTIONS (2)
  - Off label use [Unknown]
  - Wrong technique in product usage process [Unknown]
